FAERS Safety Report 19423208 (Version 1)
Quarter: 2021Q2

REPORT INFORMATION
  Report Type: Spontaneous
  Country: US (occurrence: US)
  Receive Date: 20210616
  Receipt Date: 20210616
  Transmission Date: 20210717
  Serious: No
  Sender: FDA-Public Use
  Company Number: US-BIOGEN-2021BI01020723

PATIENT
  Sex: Female

DRUGS (14)
  1. MODAFINIL. [Concomitant]
     Active Substance: MODAFINIL
     Route: 065
  2. ASPIRIN CHILD [Concomitant]
     Route: 065
  3. VUMERITY [Suspect]
     Active Substance: DIROXIMEL FUMARATE
     Indication: MULTIPLE SCLEROSIS
     Route: 048
  4. NADOLOL. [Concomitant]
     Active Substance: NADOLOL
     Route: 065
  5. TURMERIC [Concomitant]
     Active Substance: HERBALS\TURMERIC
     Route: 065
  6. BIOTIN [Concomitant]
     Active Substance: BIOTIN
     Route: 065
  7. VITAMIN D [Concomitant]
     Active Substance: VITAMIN D NOS
     Route: 065
  8. CITALOPRAM [Concomitant]
     Active Substance: CITALOPRAM HYDROBROMIDE
     Route: 065
  9. GLUCOSAMINE [Concomitant]
     Active Substance: GLUCOSAMINE
     Route: 065
  10. VUMERITY [Suspect]
     Active Substance: DIROXIMEL FUMARATE
     Route: 048
  11. BACLOFEN. [Concomitant]
     Active Substance: BACLOFEN
     Route: 065
  12. METHYLPHENIDATE HYDROCHLORIDE. [Concomitant]
     Active Substance: METHYLPHENIDATE HYDROCHLORIDE
     Route: 065
  13. ACETYL L?CARNITINE [Concomitant]
     Active Substance: ACETYLCARNITINE
     Route: 065
  14. LORATADINE. [Concomitant]
     Active Substance: LORATADINE
     Route: 065

REACTIONS (1)
  - Arthritis [Unknown]
